FAERS Safety Report 19400126 (Version 1)
Quarter: 2021Q2

REPORT INFORMATION
  Report Type: Report from Study
  Country: KR (occurrence: KR)
  Receive Date: 20210610
  Receipt Date: 20210610
  Transmission Date: 20210717
  Serious: Yes (Hospitalization)
  Sender: FDA-Public Use
  Company Number: KR-EISAI MEDICAL RESEARCH-EC-2021-094138

PATIENT
  Age: 59 Year
  Sex: Male
  Weight: 64.7 kg

DRUGS (4)
  1. OXALIPLATIN (7902 STUDY) [Suspect]
     Active Substance: OXALIPLATIN
     Indication: GASTROOESOPHAGEAL CANCER
     Dosage: DOSE ALSO REPORTED AS 226.2 MG
     Route: 042
     Dates: start: 20210514, end: 20210514
  2. LENVATINIB [Suspect]
     Active Substance: LENVATINIB
     Indication: GASTROOESOPHAGEAL CANCER
     Route: 048
  3. PEMBROLIZUMAB. [Suspect]
     Active Substance: PEMBROLIZUMAB
     Indication: GASTROOESOPHAGEAL CANCER
     Route: 042
  4. CAPECITABINE (7902 STUDY) [Suspect]
     Active Substance: CAPECITABINE
     Indication: GASTROOESOPHAGEAL CANCER
     Dosage: BID FOR 14 DAYS Q3W FOR 4 CYCLES (DOSE ALSO REPORTED AS 1750 MG)
     Route: 048
     Dates: start: 20210514, end: 20210514

REACTIONS (1)
  - Hypertension [Not Recovered/Not Resolved]

NARRATIVE: CASE EVENT DATE: 20210602
